FAERS Safety Report 11322006 (Version 2)
Quarter: 2021Q1

REPORT INFORMATION
  Report Type: Spontaneous
  Country: GR (occurrence: GR)
  Receive Date: 20150729
  Receipt Date: 20210202
  Transmission Date: 20210419
  Serious: Yes (Other)
  Sender: FDA-Public Use
  Company Number: PHHY2015GR086727

PATIENT
  Age: 37 Year
  Sex: Male

DRUGS (17)
  1. DESFERAL [Suspect]
     Active Substance: DEFEROXAMINE MESYLATE
     Dosage: RESUMED AT UNKNOWN DOSE
     Route: 065
     Dates: start: 20150714
  2. DIUREN [Concomitant]
     Active Substance: FUROSEMIDE
     Indication: URINE CALCIUM
     Dosage: UNK UNK, QD
     Route: 065
     Dates: start: 20120327
  3. D3 FIX [Concomitant]
     Dosage: 1200 IU, QD
     Route: 065
     Dates: start: 20140227
  4. NEBIDO [Concomitant]
     Active Substance: TESTOSTERONE UNDECANOATE
     Indication: HYPOGONADISM
     Dosage: UNK (1X1/ QUARTER, AMPOULE)
     Route: 065
  5. CARVEPEN [Concomitant]
     Active Substance: CARVEDILOL
     Indication: ATRIAL FIBRILLATION
     Dosage: 6.25 MG, 1 ?1/2 ?1/ DAYS
     Route: 065
     Dates: start: 20100622
  6. DESFERAL [Suspect]
     Active Substance: DEFEROXAMINE MESYLATE
     Indication: SERUM FERRITIN INCREASED
     Dosage: 500 MG (5 AMP 500MG/ 3 TO 4 A WEEK)
     Route: 065
     Dates: start: 20150122, end: 20150705
  7. DESFERAL [Suspect]
     Active Substance: DEFEROXAMINE MESYLATE
     Dosage: 500 MG, 5 AMPULE,3?4 TIMES PER WEEK
     Route: 065
     Dates: end: 20150507
  8. VIREAD [Concomitant]
     Active Substance: TENOFOVIR DISOPROXIL FUMARATE
     Indication: FANCONI SYNDROME
     Dosage: 1 DF, BID (1X1/ DAY)
     Route: 065
     Dates: start: 201402
  9. DIUREN [Concomitant]
     Active Substance: FUROSEMIDE
     Dosage: 1 DF, BID
     Route: 065
     Dates: start: 20120327
  10. D3 FIX [Concomitant]
     Indication: OSTEOPOROSIS
     Dosage: 1 DF, BID
     Route: 065
     Dates: start: 20140227
  11. EXJADE [Suspect]
     Active Substance: DEFERASIROX
     Indication: THALASSAEMIA BETA
     Dosage: 29 MG/KG (1750MG / 24H)
     Route: 065
     Dates: start: 200806, end: 20150507
  12. XARELTO [Concomitant]
     Active Substance: RIVAROXABAN
     Indication: PRODUCT USED FOR UNKNOWN INDICATION
     Dosage: 20 MG, QD (1DF, QD)
     Route: 065
     Dates: start: 20150520
  13. VIREAD [Concomitant]
     Active Substance: TENOFOVIR DISOPROXIL FUMARATE
     Indication: HEPATITIS B
     Dosage: 245 MG, QD
     Route: 065
     Dates: start: 201402
  14. THYROHORMONE [Concomitant]
     Active Substance: LEVOTHYROXINE SODIUM
     Indication: HYPOTHYROIDISM
     Dosage: 1 DF, QD (0.1 EACH, 1X 1 PER DAY)
     Route: 065
  15. THYROHORMONE [Concomitant]
     Active Substance: LEVOTHYROXINE SODIUM
     Dosage: UNK, BID (01:1 X 1/ DAY)
     Route: 065
  16. EXJADE [Suspect]
     Active Substance: DEFERASIROX
     Dosage: 29 MG/KG (1750MG / 24H)
     Route: 065
     Dates: start: 20080601, end: 20150705
  17. NEBIDO [Concomitant]
     Active Substance: TESTOSTERONE UNDECANOATE
     Dosage: UNK, BID (1X1/ EVERY THREE MONTHS)
     Route: 065

REACTIONS (11)
  - Protein urine present [Unknown]
  - Glycosuria [Recovering/Resolving]
  - Myalgia [Recovering/Resolving]
  - Urine uric acid increased [Recovering/Resolving]
  - Abdominal pain upper [Recovering/Resolving]
  - Off label use [Unknown]
  - Drug interaction [Recovering/Resolving]
  - Albumin urine present [Recovering/Resolving]
  - Urine calcium increased [Recovering/Resolving]
  - Toxicity to various agents [Recovering/Resolving]
  - Transaminases increased [Recovering/Resolving]

NARRATIVE: CASE EVENT DATE: 20150218
